FAERS Safety Report 10044162 (Version 2)
Quarter: 2014Q1

REPORT INFORMATION
  Report Type: Spontaneous
  Country: JP (occurrence: JP)
  Receive Date: 20140328
  Receipt Date: 20140328
  Transmission Date: 20141002
  Serious: Yes (Hospitalization)
  Sender: FDA-Public Use
  Company Number: JP-ELI_LILLY_AND_COMPANY-JP201311007203

PATIENT
  Age: 61 Year
  Sex: Male
  Weight: 57 kg

DRUGS (9)
  1. ALIMTA [Suspect]
     Indication: METASTASES TO CENTRAL NERVOUS SYSTEM
     Dosage: 800 MG, UNK
     Route: 042
     Dates: start: 20130117, end: 20130214
  2. ZYPREXA [Suspect]
     Indication: CONVULSION
     Dosage: 5 MG, QD
     Route: 048
     Dates: start: 20120911, end: 20130301
  3. BEVACIZUMAB [Concomitant]
     Indication: METASTASES TO CENTRAL NERVOUS SYSTEM
     Dosage: 850 MG, UNK
     Route: 042
     Dates: start: 20130117, end: 20130214
  4. BEVACIZUMAB [Concomitant]
     Dosage: UNK
     Route: 042
     Dates: start: 20130419
  5. PANVITAN [Concomitant]
     Dosage: UNK
     Route: 048
     Dates: start: 20130110, end: 20130308
  6. METHYCOBAL [Concomitant]
     Dosage: UNK
     Dates: start: 20130110
  7. URSO [Concomitant]
     Indication: LIVER DISORDER
     Dosage: 100 MG, TID
     Route: 048
     Dates: start: 20120906, end: 201310
  8. ALEVIATIN [Concomitant]
     Indication: CONVULSION
     Dosage: 100 MG, BID
     Route: 048
     Dates: start: 20120815
  9. ISOBIDE [Concomitant]
     Indication: CONVULSION
     Dosage: 21 MG, TID
     Route: 048
     Dates: start: 20121002, end: 20130306

REACTIONS (2)
  - Interstitial lung disease [Recovering/Resolving]
  - Off label use [Unknown]
